FAERS Safety Report 6918787-2 (Version None)
Quarter: 2010Q3

REPORT INFORMATION
  Report Type: 
  Country: None (occurrence: None)
  Receive Date: 20100811
  Receipt Date: 20100804
  Transmission Date: 20110219
  Serious: Yes (Death)
  Sender: FDA-Public Use
  Company Number: US-ALLERGAN-1010240US

PATIENT
  Age: 26 Year
  Sex: Male

DRUGS (1)
  1. BOTOX [Suspect]
     Indication: OROMANDIBULAR DYSTONIA
     Dosage: 12.5 UNITS, SINGLE
     Route: 030

REACTIONS (2)
  - DYSPHAGIA [None]
  - SUDDEN DEATH [None]
